FAERS Safety Report 14105030 (Version 1)
Quarter: 2017Q4

REPORT INFORMATION
  Report Type: Spontaneous
  Country: US (occurrence: US)
  Receive Date: 20171018
  Receipt Date: 20171018
  Transmission Date: 20180321
  Serious: Yes (Congenital Anomaly, Other)
  Sender: FDA-Public Use
  Company Number: US-ABBVIE-17P-163-2132641-00

PATIENT
  Sex: Male

DRUGS (4)
  1. MESANTOIN [Suspect]
     Active Substance: MEPHENYTOIN
     Indication: MATERNAL EXPOSURE TIMING UNSPECIFIED
     Route: 064
  2. PRIMIDONE. [Suspect]
     Active Substance: PRIMIDONE
     Indication: MATERNAL EXPOSURE TIMING UNSPECIFIED
     Route: 064
  3. VALPROIC ACID. [Suspect]
     Active Substance: VALPROIC ACID
     Indication: MATERNAL EXPOSURE TIMING UNSPECIFIED
     Route: 064
  4. DIPHENYLHYDANTOIN [Suspect]
     Active Substance: PHENYTOIN
     Indication: MATERNAL EXPOSURE TIMING UNSPECIFIED
     Route: 064

REACTIONS (17)
  - Congenital cardiovascular anomaly [Unknown]
  - Ventricular septal defect [Unknown]
  - Foetal exposure during pregnancy [Unknown]
  - Abdominal wall anomaly [Unknown]
  - Cryptorchism [Unknown]
  - Craniofacial deformity [Unknown]
  - Phalangeal hypoplasia [Unknown]
  - Microcephaly [Unknown]
  - Head deformity [Unknown]
  - Developmental delay [Unknown]
  - Inguinal hernia [Unknown]
  - Prominent epicanthal folds [Unknown]
  - Foetal anticonvulsant syndrome [Unknown]
  - Skull malformation [Unknown]
  - Congenital nose malformation [Unknown]
  - Dysmorphism [Unknown]
  - Limb malformation [Unknown]
